FAERS Safety Report 8771291 (Version 8)
Quarter: 2016Q4

REPORT INFORMATION
  Report Type: Spontaneous
  Country: US (occurrence: US)
  Receive Date: 20120905
  Receipt Date: 20161011
  Transmission Date: 20170207
  Serious: No
  Sender: FDA-Public Use
  Company Number: US-009507513-1209USA000759

PATIENT
  Sex: Male
  Weight: 93.42 kg

DRUGS (4)
  1. PROPECIA [Suspect]
     Active Substance: FINASTERIDE
     Dosage: 5 MG, QD
     Route: 048
  2. PROPECIA [Suspect]
     Active Substance: FINASTERIDE
     Indication: ANDROGENETIC ALOPECIA
     Dosage: 1 MG, QD
     Route: 048
     Dates: start: 20070918, end: 201112
  3. PROSCAR [Suspect]
     Active Substance: FINASTERIDE
     Indication: ANDROGENETIC ALOPECIA
     Dosage: 5 MG, 1/4 TAB QD
     Route: 048
  4. FINASTERIDE. [Suspect]
     Active Substance: FINASTERIDE
     Dosage: 1/4 OF 5 MG TAB, QD
     Route: 048
     Dates: start: 20110523

REACTIONS (27)
  - Insomnia [Unknown]
  - Fatigue [Not Recovered/Not Resolved]
  - Adverse drug reaction [Not Recovered/Not Resolved]
  - Nasal congestion [Unknown]
  - Erectile dysfunction [Not Recovered/Not Resolved]
  - Prostatic pain [Not Recovered/Not Resolved]
  - Irritability [Unknown]
  - Adrenal disorder [Unknown]
  - Pruritus [Unknown]
  - Cognitive disorder [Not Recovered/Not Resolved]
  - Intentional product misuse [Unknown]
  - Increased appetite [Unknown]
  - Dry skin [Unknown]
  - Prostatitis [Unknown]
  - Overdose [Unknown]
  - Palpitations [Unknown]
  - Persistent depressive disorder [Unknown]
  - Endocrine disorder [Unknown]
  - Asthenia [Unknown]
  - Panic attack [Not Recovered/Not Resolved]
  - Depression [Not Recovered/Not Resolved]
  - Anxiety [Not Recovered/Not Resolved]
  - Wrong technique in product usage process [Unknown]
  - Sexual dysfunction [Unknown]
  - Libido decreased [Not Recovered/Not Resolved]
  - Hypoglycaemia [Recovering/Resolving]
  - Salt craving [Unknown]

NARRATIVE: CASE EVENT DATE: 20070918
